FAERS Safety Report 5474646-6 (Version None)
Quarter: 2007Q4

REPORT INFORMATION
  Report Type: 
  Country: None (occurrence: None)
  Receive Date: 20071002
  Receipt Date: 20070925
  Transmission Date: 20080405
  Serious: Yes (Hospitalization, Other)
  Sender: FDA-Public Use
  Company Number: US-ASTRAZENECA-2007UW20874

PATIENT
  Age: 22 Year
  Sex: Male
  Weight: 66.2 kg

DRUGS (4)
  1. SEROQUEL [Suspect]
     Indication: BIPOLAR DISORDER
     Route: 048
     Dates: start: 20070825, end: 20070831
  2. SEROQUEL [Suspect]
     Indication: PSYCHOTIC DISORDER
     Route: 048
     Dates: start: 20070825, end: 20070831
  3. LAMICTAL [Concomitant]
  4. ZYPREXA [Concomitant]
     Route: 048

REACTIONS (10)
  - ABNORMAL BEHAVIOUR [None]
  - AGITATION [None]
  - CONFUSIONAL STATE [None]
  - DYSARTHRIA [None]
  - DYSKINESIA [None]
  - EATING DISORDER [None]
  - FEELING ABNORMAL [None]
  - INSOMNIA [None]
  - PNEUMONIA [None]
  - SOMNOLENCE [None]
